FAERS Safety Report 25422184 (Version 1)
Quarter: 2025Q2

REPORT INFORMATION
  Report Type: Spontaneous
  Country: US (occurrence: US)
  Receive Date: 20250611
  Receipt Date: 20250611
  Transmission Date: 20250716
  Serious: Yes (Hospitalization, Other)
  Sender: SINOTHERAPEUTICS INC.
  Company Number: US-SNT-000421

PATIENT
  Age: 19 Year
  Sex: Female

DRUGS (9)
  1. POSACONAZOLE [Suspect]
     Active Substance: POSACONAZOLE
     Indication: Coccidioidomycosis
     Dosage: ADMINISTERED A SINGLE DOSE OF POSACONAZOLE 300 MG ON DAY 4 OF HOSPITALIZATION.
     Route: 065
  2. EPINEPHRINE [Concomitant]
     Active Substance: EPINEPHRINE
     Indication: Drug reaction with eosinophilia and systemic symptoms
     Route: 030
  3. HYDROCORTISONE [Concomitant]
     Active Substance: HYDROCORTISONE
     Indication: Drug reaction with eosinophilia and systemic symptoms
     Route: 065
  4. DIPHENHYDRAMINE [Concomitant]
     Active Substance: DIPHENHYDRAMINE
     Indication: Drug reaction with eosinophilia and systemic symptoms
     Route: 030
  5. METHYLPREDNISOLONE [Concomitant]
     Active Substance: METHYLPREDNISOLONE
     Indication: Drug reaction with eosinophilia and systemic symptoms
     Route: 042
  6. FAMOTIDINE [Concomitant]
     Active Substance: FAMOTIDINE
     Indication: Drug reaction with eosinophilia and systemic symptoms
     Route: 065
  7. PREDNISOLONE [Concomitant]
     Active Substance: PREDNISOLONE
     Indication: Drug reaction with eosinophilia and systemic symptoms
     Route: 065
  8. EPINEPHRINE [Concomitant]
     Active Substance: EPINEPHRINE
     Indication: Drug reaction with eosinophilia and systemic symptoms
     Route: 042
  9. DIPHENHYDRAMINE [Concomitant]
     Active Substance: DIPHENHYDRAMINE
     Indication: Drug reaction with eosinophilia and systemic symptoms
     Route: 065

REACTIONS (3)
  - Off label use [Unknown]
  - Symptom recurrence [Recovered/Resolved]
  - Drug reaction with eosinophilia and systemic symptoms [Recovered/Resolved]
